FAERS Safety Report 13757245 (Version 1)
Quarter: 2017Q3

REPORT INFORMATION
  Report Type: Spontaneous
  Country: US (occurrence: US)
  Receive Date: 20170716
  Receipt Date: 20170716
  Transmission Date: 20171127
  Serious: No
  Sender: FDA-Public Use
  Company Number: None

PATIENT
  Age: 46 Year
  Sex: Male
  Weight: 99 kg

DRUGS (3)
  1. OXYCODONE [Suspect]
     Active Substance: OXYCODONE
     Indication: SPINAL OPERATION
     Dosage: ?          OTHER STRENGTH:MG;QUANTITY:80 TABLET(S);?
     Route: 048
     Dates: start: 20170714, end: 20170716
  2. GENERIC FOR 5-325 PERCOCET [Suspect]
     Active Substance: ACETAMINOPHEN\OXYCODONE HYDROCHLORIDE
  3. OXYCODONE [Suspect]
     Active Substance: OXYCODONE
     Indication: BACK PAIN
     Dosage: ?          OTHER STRENGTH:MG;QUANTITY:80 TABLET(S);?
     Route: 048
     Dates: start: 20170714, end: 20170716

REACTIONS (4)
  - Product substitution issue [None]
  - Disorientation [None]
  - Drug ineffective [None]
  - Abdominal discomfort [None]

NARRATIVE: CASE EVENT DATE: 20170714
